FAERS Safety Report 7243038-1 (Version None)
Quarter: 2011Q1

REPORT INFORMATION
  Report Type: 
  Country: None (occurrence: None)
  Receive Date: 20110125
  Receipt Date: 20101018
  Transmission Date: 20110831
  Serious: No
  Sender: FDA-Public Use
  Company Number: US-AMGEN-KDL444980

PATIENT
  Age: 68 Year
  Sex: Female
  Weight: 49.433 kg

DRUGS (4)
  1. ASMANEX TWISTHALER [Concomitant]
     Indication: TREMOR
     Dosage: UNK UNK, QD
     Dates: start: 20100222
  2. PROLIA [Suspect]
     Indication: OSTEOPOROSIS POSTMENOPAUSAL
     Dosage: UNK UNK, Q6MO
     Route: 058
     Dates: start: 20100928, end: 20100928
  3. XOPENEX HFA [Concomitant]
     Indication: TREMOR
     Dosage: UNK
     Dates: start: 20080101
  4. OMEPRAZOLE [Concomitant]
     Indication: GASTROOESOPHAGEAL REFLUX DISEASE
     Dosage: 20 G, QD
     Route: 048

REACTIONS (3)
  - RASH [None]
  - CONTUSION [None]
  - PRURITUS [None]
